FAERS Safety Report 25899757 (Version 1)
Quarter: 2025Q4

REPORT INFORMATION
  Report Type: Spontaneous
  Country: US (occurrence: US)
  Receive Date: 20251009
  Receipt Date: 20251009
  Transmission Date: 20260117
  Serious: Yes (Hospitalization)
  Sender: ACCORD
  Company Number: US-MLMSERVICE-20250919-PI651226-00101-1

PATIENT
  Age: 67 Year
  Sex: Female

DRUGS (5)
  1. CISPLATIN [Suspect]
     Active Substance: CISPLATIN
     Indication: Triple negative breast cancer
     Dosage: SEVERAL CYCLES OF CHEMOTHERAPY WITH THE LAST DOSE RECEIVED 3 MONTHS PRIOR TO THIS PRESENTATION
  2. PACLITAXEL [Suspect]
     Active Substance: PACLITAXEL
     Indication: Triple negative breast cancer
     Dosage: SEVERAL CYCLES OF CHEMOTHERAPY WITH THE LAST DOSE RECEIVED 3 MONTHS PRIOR TO THIS PRESENTATION
  3. ADRIAMYCIN [Suspect]
     Active Substance: DOXORUBICIN HYDROCHLORIDE
     Indication: Triple negative breast cancer
  4. CYCLOPHOSPHAMIDE [Suspect]
     Active Substance: CYCLOPHOSPHAMIDE
     Indication: Triple negative breast cancer
     Dosage: SEVERAL CYCLES OF CHEMOTHERAPY WITH THE LAST DOSE RECEIVED 3 MONTHS PRIOR TO THIS PRESENTATION
  5. PEMBROLIZUMAB [Suspect]
     Active Substance: PEMBROLIZUMAB
     Indication: Triple negative breast cancer
     Dosage: SEVERAL CYCLES OF CHEMOTHERAPY WITH THE LAST DOSE RECEIVED 3 MONTHS PRIOR TO THIS PRESENTATION

REACTIONS (6)
  - Febrile neutropenia [Unknown]
  - Pancytopenia [Unknown]
  - COVID-19 [Unknown]
  - Cytomegalovirus viraemia [Unknown]
  - Systemic candida [Unknown]
  - Off label use [Unknown]
